FAERS Safety Report 19588170 (Version 1)
Quarter: 2021Q3

REPORT INFORMATION
  Report Type: Spontaneous
  Country: US (occurrence: US)
  Receive Date: 20210721
  Receipt Date: 20210721
  Transmission Date: 20211014
  Serious: Yes (Hospitalization)
  Sender: FDA-Public Use
  Company Number: None

PATIENT
  Age: 36 Year
  Sex: Male
  Weight: 90 kg

DRUGS (1)
  1. REMICADE [Suspect]
     Active Substance: INFLIXIMAB
     Indication: SARCOIDOSIS
     Dosage: ?          OTHER FREQUENCY:EVERY 6 WEEKS;?
     Route: 041
     Dates: start: 20210424, end: 20210716

REACTIONS (13)
  - Erythema [None]
  - Asthenia [None]
  - Chest pain [None]
  - Blood pressure increased [None]
  - Chest discomfort [None]
  - Infusion related reaction [None]
  - Speech disorder [None]
  - Palpitations [None]
  - Heart rate increased [None]
  - Breath sounds abnormal [None]
  - Malaise [None]
  - Nausea [None]
  - Retching [None]

NARRATIVE: CASE EVENT DATE: 20210716
